FAERS Safety Report 4743454-3 (Version None)
Quarter: 2005Q3

REPORT INFORMATION
  Report Type: 
  Country: None (occurrence: None)
  Receive Date: 20050810
  Receipt Date: 20050810
  Transmission Date: 20060218
  Serious: Yes (Hospitalization, Other)
  Sender: FDA-Public Use
  Company Number: None

PATIENT
  Sex: Female

DRUGS (7)
  1. SUN BATH PROTECTIVE TANNING LOTION [Suspect]
     Dosage: TOPICAL
     Route: 061
     Dates: start: 19750101, end: 20030101
  2. BAIN DE SOLEIL ORANGE GELEE SPF 15 TOPICAL GEL [Suspect]
     Dosage: TOPICAL
     Route: 065
  3. SUN BATH PROTECTIVE TANNING CREAM [Suspect]
     Dosage: TOPICAL
     Route: 061
  4. PEDICURE ESSENTIALS CRACKED SKIN REPAIR CREAM LOTION [Suspect]
     Indication: DRUG USE FOR UNKNOWN INDICATION
     Dosage: TOPICAL
     Route: 061
  5. BAIN DE SOLEIL ORANGE GELEE SPF 4 TOPICALS [Suspect]
     Dosage: TOPICAL
     Route: 061
  6. BAIN DE SOLEIL SUNSCREEN/ PROTECT/ SELF TAN-CATEGORY ON LOTION [Suspect]
     Indication: DRUG USE FOR UNKNOWN INDICATION
     Dosage: TOPICAL
     Route: 065
  7. PEDICURE ESSENTIALS TOPICALS [Suspect]
     Indication: DRUG USE FOR UNKNOWN INDICATION
     Dosage: TOPICAL
     Route: 061

REACTIONS (1)
  - ACUTE MYELOID LEUKAEMIA [None]
